FAERS Safety Report 9908860 (Version 2)
Quarter: 2014Q1

REPORT INFORMATION
  Report Type: Spontaneous
  Country: FI (occurrence: FI)
  Receive Date: 20140219
  Receipt Date: 20140303
  Transmission Date: 20141002
  Serious: Yes (Death)
  Sender: FDA-Public Use
  Company Number: FI-ASTELLAS-2014EU001297

PATIENT
  Sex: 0

DRUGS (1)
  1. PROTOPIC [Suspect]
     Indication: EXPOSURE VIA FATHER
     Dosage: UNK
     Route: 065

REACTIONS (2)
  - Exposure via father [Unknown]
  - Cytogenetic abnormality [Fatal]
